FAERS Safety Report 8433585-9 (Version None)
Quarter: 2012Q2

REPORT INFORMATION
  Report Type: 
  Country: None (occurrence: None)
  Receive Date: 20120323
  Receipt Date: 20110715
  Transmission Date: 20120825
  Serious: Yes (Hospitalization)
  Sender: FDA-Public Use
  Company Number: 163-21880-11071930

PATIENT
  Age: 48 Year
  Sex: Male

DRUGS (4)
  1. REVLIMID [Suspect]
     Indication: MULTIPLE MYELOMA
     Dosage: 15 MG, 1 IN 1 D, PO; 25 MG, 1 IN 1 D, PO; 15 MG, X 21 DAYS PO; 10 MG, 1 IN 1 D, PO
     Route: 048
     Dates: start: 20081201, end: 20110616
  2. REVLIMID [Suspect]
     Indication: MULTIPLE MYELOMA
     Dosage: 15 MG, 1 IN 1 D, PO; 25 MG, 1 IN 1 D, PO; 15 MG, X 21 DAYS PO; 10 MG, 1 IN 1 D, PO
     Route: 048
     Dates: start: 20090601
  3. REVLIMID [Suspect]
     Indication: MULTIPLE MYELOMA
     Dosage: 15 MG, 1 IN 1 D, PO; 25 MG, 1 IN 1 D, PO; 15 MG, X 21 DAYS PO; 10 MG, 1 IN 1 D, PO
     Route: 048
     Dates: start: 20101001
  4. REVLIMID [Suspect]
     Indication: MULTIPLE MYELOMA
     Dosage: 15 MG, 1 IN 1 D, PO; 25 MG, 1 IN 1 D, PO; 15 MG, X 21 DAYS PO; 10 MG, 1 IN 1 D, PO
     Route: 048
     Dates: start: 20110401

REACTIONS (1)
  - PAIN [None]
